FAERS Safety Report 14926418 (Version 1)
Quarter: 2018Q2

REPORT INFORMATION
  Report Type: Spontaneous
  Country: DE (occurrence: DE)
  Receive Date: 20180523
  Receipt Date: 20180523
  Transmission Date: 20180711
  Serious: No
  Sender: FDA-Public Use
  Company Number: DE-HORMOSAN-2018-00904

PATIENT
  Sex: Female

DRUGS (2)
  1. QUETIAPIN-HORMOSAN FILMTABLETTEN [Suspect]
     Active Substance: QUETIAPINE FUMARATE
     Indication: INSOMNIA
     Dosage: 150 MG, UNK
     Route: 065
  2. QUETIAPIN-HORMOSAN FILMTABLETTEN [Suspect]
     Active Substance: QUETIAPINE FUMARATE
     Dosage: UNK (DOSE REDUCTIONS)
     Route: 065

REACTIONS (2)
  - Pharyngitis [Unknown]
  - Sinusitis [Unknown]
